FAERS Safety Report 26121494 (Version 3)
Quarter: 2025Q4

REPORT INFORMATION
  Report Type: Spontaneous
  Country: AR (occurrence: AR)
  Receive Date: 20251204
  Receipt Date: 20251219
  Transmission Date: 20260118
  Serious: Yes (Other)
  Sender: MYLAN
  Company Number: AR-MYLANLABS-2025M1093476

PATIENT
  Age: 28 Year
  Sex: Female

DRUGS (5)
  1. CLOZAPINE [Suspect]
     Active Substance: CLOZAPINE
     Indication: Borderline personality disorder
     Dosage: 1 DOSAGE FORM, QD (ONE TABLET PER DAY, APPROXIMATE DATE: 01-JAN-2025)
     Dates: start: 202501
  2. VALPROIC ACID [Concomitant]
     Active Substance: VALPROIC ACID
     Indication: Borderline personality disorder
     Dosage: 4 DOSAGE FORM, QD (4 TABLETS PER DAY)
  3. QUETIAPINE [Concomitant]
     Active Substance: QUETIAPINE
     Indication: Borderline personality disorder
     Dosage: 0.5 DOSAGE FORM, QD (? TABLET PER DAY)
  4. QUETIAPINE [Concomitant]
     Active Substance: QUETIAPINE
     Indication: Borderline personality disorder
     Dosage: 2 DOSAGE FORM, QD (2 TABLETS PER DAY)
  5. CLOTHIAPINE [Concomitant]
     Active Substance: CLOTHIAPINE
     Indication: Borderline personality disorder
     Dosage: 3 DOSAGE FORM, QD (3 TABLETS PER DAY)

REACTIONS (4)
  - Neutropenia [Recovered/Resolved]
  - Leukocytosis [Recovered/Resolved]
  - Product prescribing issue [Unknown]
  - Contraindicated product prescribed [Unknown]

NARRATIVE: CASE EVENT DATE: 20250101
